FAERS Safety Report 5520187-7 (Version None)
Quarter: 2007Q4

REPORT INFORMATION
  Report Type: 
  Country: None (occurrence: None)
  Receive Date: 20071116
  Receipt Date: 20071108
  Transmission Date: 20080405
  Serious: Yes (Hospitalization)
  Sender: FDA-Public Use
  Company Number: FR-ABBOTT-07P-056-0423879-00

PATIENT
  Sex: Male

DRUGS (8)
  1. SECALIP [Suspect]
     Indication: DRUG USE FOR UNKNOWN INDICATION
     Route: 048
  2. FLUINDIONE [Suspect]
     Indication: PHLEBITIS
     Route: 048
  3. FLUINDIONE [Suspect]
     Route: 048
     Dates: start: 20070903
  4. FLUINDIONE [Suspect]
     Route: 048
     Dates: start: 20070901, end: 20070901
  5. CITALOPRAM HYDROBROMIDE [Suspect]
     Indication: DRUG USE FOR UNKNOWN INDICATION
     Route: 048
  6. METFORMIN HYDROCHLORIDE [Concomitant]
     Indication: DRUG USE FOR UNKNOWN INDICATION
     Route: 048
  7. VALSARTAN [Concomitant]
     Indication: DRUG USE FOR UNKNOWN INDICATION
     Route: 048
  8. SPIRONOLACTONE [Concomitant]
     Indication: DRUG USE FOR UNKNOWN INDICATION
     Route: 048

REACTIONS (3)
  - ABDOMINAL PAIN [None]
  - HAEMORRHAGE [None]
  - MUSCLE HAEMORRHAGE [None]
